FAERS Safety Report 7571812-0 (Version None)
Quarter: 2011Q2

REPORT INFORMATION
  Report Type: 
  Country: None (occurrence: None)
  Receive Date: 20110620
  Receipt Date: 20110603
  Transmission Date: 20111010
  Serious: Yes (Other)
  Sender: FDA-Public Use
  Company Number: 2011MA006768

PATIENT
  Age: 30 Year
  Sex: Male

DRUGS (4)
  1. SERTRALINE HYDROCHLORIDE [Suspect]
     Indication: DEPRESSION
     Dosage: 200 MG;QD
  2. CYPROHEPTADINE HCL [Concomitant]
  3. QUETIAPINE [Concomitant]
  4. MIRTAZAPINE [Concomitant]

REACTIONS (1)
  - SEROTONIN SYNDROME [None]
